FAERS Safety Report 15005327 (Version 1)
Quarter: 2018Q2

REPORT INFORMATION
  Report Type: Spontaneous
  Country: US (occurrence: US)
  Receive Date: 20180613
  Receipt Date: 20180613
  Transmission Date: 20180711
  Serious: No
  Sender: FDA-Public Use
  Company Number: US-MYLANLABS-2018M1035554

PATIENT
  Sex: Female
  Weight: 88.44 kg

DRUGS (1)
  1. SERTRALINE HYDROCHLORIDE TABLETS, USP [Suspect]
     Active Substance: SERTRALINE HYDROCHLORIDE
     Indication: DEPRESSION
     Dosage: 200 MG, QD
     Route: 048

REACTIONS (1)
  - Depression [Not Recovered/Not Resolved]
